FAERS Safety Report 8021271-9 (Version None)
Quarter: 2012Q1

REPORT INFORMATION
  Report Type: 
  Country: None (occurrence: None)
  Receive Date: 20120104
  Receipt Date: 20111230
  Transmission Date: 20120608
  Serious: Yes (Hospitalization)
  Sender: FDA-Public Use
  Company Number: FR-B.I. PHARMACEUTICALS,INC./RIDGEFIELD-2011-FF-01090FF

PATIENT
  Sex: Female
  Weight: 72 kg

DRUGS (8)
  1. LASIX [Concomitant]
     Dosage: 40 MG
     Route: 048
  2. SULFARLEM S 25 [Concomitant]
     Dosage: 25 MG
     Route: 048
  3. PRADAXA [Suspect]
     Indication: PROPHYLAXIS
     Dosage: 110 MG
     Route: 048
     Dates: start: 20110922, end: 20110925
  4. VOLTAREN [Concomitant]
     Dosage: 150 MG
     Route: 048
  5. NEXIUM [Concomitant]
     Dosage: 40 MG
     Route: 048
  6. BISOPROLOL FUMARATE AND HYDROCHLOROTHIAZIDE [Concomitant]
     Dosage: 10/6.25MG
     Route: 048
  7. CLORAZEPATE DIPOTASSIUM [Concomitant]
     Dosage: 10 MG
     Route: 048
  8. LEVOTHYROXINE SODIUM [Concomitant]
     Dosage: 75 MCG
     Route: 048

REACTIONS (2)
  - DEEP VEIN THROMBOSIS [None]
  - DRUG INEFFECTIVE [None]
